FAERS Safety Report 5029857-0 (Version None)
Quarter: 2006Q2

REPORT INFORMATION
  Report Type: 
  Country: None (occurrence: None)
  Receive Date: 20060620
  Receipt Date: 20060524
  Transmission Date: 20061013
  Serious: Yes (Hospitalization, Other)
  Sender: FDA-Public Use
  Company Number: US-AMGEN-STX180810

PATIENT
  Sex: Female

DRUGS (6)
  1. ENBREL [Suspect]
     Indication: RHEUMATOID ARTHRITIS
     Route: 058
     Dates: start: 20000428, end: 20060522
  2. PREDNISONE [Concomitant]
     Dates: start: 20000328
  3. LORTAB [Concomitant]
     Dates: start: 20000701
  4. EFFEXOR [Concomitant]
     Dates: start: 20000901
  5. ZYRTEC [Concomitant]
     Dates: start: 20000201
  6. ATENOLOL [Concomitant]
     Dates: start: 20031201

REACTIONS (8)
  - ARTHROPATHY [None]
  - DIZZINESS [None]
  - INJECTION SITE ERYTHEMA [None]
  - INJECTION SITE PRURITUS [None]
  - INJECTION SITE SWELLING [None]
  - INJECTION SITE WARMTH [None]
  - NAUSEA [None]
  - VOMITING [None]
